FAERS Safety Report 10924316 (Version 1)
Quarter: 2015Q1

REPORT INFORMATION
  Report Type: Spontaneous
  Country: US (occurrence: None)
  Receive Date: 20150316
  Receipt Date: 20150316
  Transmission Date: 20150721
  Serious: Yes (Hospitalization)
  Sender: FDA-Public Use
  Company Number: None

PATIENT
  Age: 59 Year
  Sex: Female
  Weight: 65.77 kg

DRUGS (4)
  1. VITAMIN E [Concomitant]
     Active Substance: .ALPHA.-TOCOPHEROL
  2. VPRIV [Suspect]
     Active Substance: VELAGLUCERASE ALFA
     Dosage: EVERY 2 WEEKS  INFUSION
  3. NEXIUM [Concomitant]
     Active Substance: ESOMEPRAZOLE MAGNESIUM
  4. FORTEO [Concomitant]
     Active Substance: TERIPARATIDE

REACTIONS (3)
  - Infusion related reaction [None]
  - Photopsia [None]
  - Hypoaesthesia [None]

NARRATIVE: CASE EVENT DATE: 20150302
